FAERS Safety Report 5621989-9 (Version None)
Quarter: 2008Q1

REPORT INFORMATION
  Report Type: 
  Country: None (occurrence: None)
  Receive Date: 20080211
  Receipt Date: 20080129
  Transmission Date: 20080703
  Serious: Yes (Hospitalization, Disabling)
  Sender: FDA-Public Use
  Company Number: AU-AMGEN-US223347

PATIENT
  Sex: Male

DRUGS (15)
  1. PANITUMUMAB [Suspect]
     Indication: COLORECTAL CANCER
     Route: 042
     Dates: start: 20070412, end: 20070426
  2. IRINOTECAN [Concomitant]
     Route: 065
     Dates: end: 20070426
  3. FLUOROURACIL [Concomitant]
     Route: 065
     Dates: end: 20070426
  4. LEUCOVORIN CALCIUM [Concomitant]
     Route: 065
     Dates: end: 20070426
  5. SERETIDE [Concomitant]
     Route: 055
     Dates: start: 19960101
  6. VENTOLIN [Concomitant]
     Route: 055
     Dates: start: 19800101
  7. SPIRIVA [Concomitant]
     Route: 055
  8. ALBUTEROL [Concomitant]
     Route: 055
     Dates: start: 19800101
  9. CODEINE PHOSPHATE [Concomitant]
     Route: 065
  10. ASPIRIN [Concomitant]
     Route: 065
  11. INDAPAMIDE [Concomitant]
     Route: 048
     Dates: start: 20070101
  12. NOTEN [Concomitant]
     Route: 048
     Dates: start: 20070101
  13. SLOW-K [Concomitant]
     Route: 065
  14. ACETAMINOPHEN [Concomitant]
     Route: 048
     Dates: start: 20051205
  15. WARFARIN SODIUM [Concomitant]
     Route: 048
     Dates: start: 20070404

REACTIONS (3)
  - DIARRHOEA [None]
  - LETHARGY [None]
  - VOMITING [None]
